FAERS Safety Report 16252437 (Version 3)
Quarter: 2019Q2

REPORT INFORMATION
  Report Type: Report from Study
  Country: CA (occurrence: CA)
  Receive Date: 20190429
  Receipt Date: 20190520
  Transmission Date: 20190711
  Serious: Yes (Hospitalization)
  Sender: FDA-Public Use
  Company Number: CA-ACTELION-A-US2019-189602

PATIENT
  Age: 78 Year
  Sex: Male

DRUGS (19)
  1. UPTRAVI [Suspect]
     Active Substance: SELEXIPAG
     Dosage: 1200 MCG
     Route: 048
     Dates: start: 20190506
  2. TRACLEER [Suspect]
     Active Substance: BOSENTAN
     Indication: PULMONARY ARTERIAL HYPERTENSION
     Dosage: 125 MG
     Route: 048
     Dates: start: 20180712
  3. LANTUS [Concomitant]
     Active Substance: INSULIN GLARGINE
  4. DILAUDID [Concomitant]
     Active Substance: HYDROMORPHONE HYDROCHLORIDE
  5. GLICLAZIDE [Concomitant]
     Active Substance: GLICLAZIDE
  6. UPTRAVI [Suspect]
     Active Substance: SELEXIPAG
     Dosage: 1000 MCG, BID
     Route: 048
  7. ALLOPURINOL. [Concomitant]
     Active Substance: ALLOPURINOL
  8. INCRUSE ELLIPTA [Concomitant]
     Active Substance: UMECLIDINIUM BROMIDE
  9. ZOCARE [Concomitant]
     Active Substance: OFLOXACIN
  10. LASIX [Concomitant]
     Active Substance: FUROSEMIDE
  11. LYRICA [Concomitant]
     Active Substance: PREGABALIN
  12. ADCIRCA [Concomitant]
     Active Substance: TADALAFIL
  13. UPTRAVI [Suspect]
     Active Substance: SELEXIPAG
     Indication: PULMONARY ARTERIAL HYPERTENSION
     Dosage: 1000 MCG
     Route: 048
     Dates: start: 20190304
  14. CEFTRIAXONE. [Concomitant]
     Active Substance: CEFTRIAXONE
  15. JANUVIA [Concomitant]
     Active Substance: SITAGLIPTIN PHOSPHATE
  16. MARIJUANA [Concomitant]
     Active Substance: CANNABIS SATIVA SUBSP. INDICA TOP
  17. BISOPROLOL [Concomitant]
     Active Substance: BISOPROLOL
  18. MAGNESIUM [Concomitant]
     Active Substance: MAGNESIUM
  19. METOLAZONE. [Concomitant]
     Active Substance: METOLAZONE

REACTIONS (8)
  - Device difficult to use [Not Recovered/Not Resolved]
  - Diarrhoea [Recovered/Resolved]
  - Cellulitis [Recovering/Resolving]
  - Pain in jaw [Not Recovered/Not Resolved]
  - Oedema peripheral [Unknown]
  - Tibia fracture [Unknown]
  - Fall [Unknown]
  - Unevaluable event [Unknown]

NARRATIVE: CASE EVENT DATE: 20190506
